FAERS Safety Report 25621827 (Version 1)
Quarter: 2025Q3

REPORT INFORMATION
  Report Type: Spontaneous
  Country: US (occurrence: None)
  Receive Date: 20250729
  Receipt Date: 20250729
  Transmission Date: 20251021
  Serious: Yes (Hospitalization)
  Sender: FDA-CTU
  Company Number: None

PATIENT
  Sex: Female

DRUGS (3)
  1. MACITENTAN\TADALAFIL [Suspect]
     Active Substance: MACITENTAN\TADALAFIL
     Indication: Pulmonary arterial hypertension
     Dosage: 1 MG DAILY ORAL
     Route: 048
  2. WINREVAIR [Concomitant]
     Active Substance: SOTATERCEPT-CSRK
  3. FLOLAN STERILE DILUENT (50ML) [Concomitant]

REACTIONS (1)
  - Complication associated with device [None]
